FAERS Safety Report 4845877-0 (Version None)
Quarter: 2005Q4

REPORT INFORMATION
  Report Type: 
  Country: None (occurrence: None)
  Receive Date: 20051201
  Receipt Date: 20051118
  Transmission Date: 20060501
  Serious: Yes (Hospitalization, Other)
  Sender: FDA-Public Use
  Company Number: 2005158459

PATIENT
  Sex: Male
  Weight: 93.441 kg

DRUGS (3)
  1. GLIPIZIDE [Suspect]
     Indication: DIABETES MELLITUS
     Dosage: 10 MG (10 MG, 1 IN 1 D), ORAL
     Route: 048
  2. GLIPIZIDE [Suspect]
     Indication: DIABETES MELLITUS
     Dosage: 10 MG (10 MG, 1 IN 1 D)
  3. OXYCODONE (OXYCODONE) [Suspect]
     Indication: PAIN

REACTIONS (17)
  - BLOOD GLUCOSE INCREASED [None]
  - DIFFICULTY IN WALKING [None]
  - DIZZINESS [None]
  - DRUG INEFFECTIVE [None]
  - EXERCISE LACK OF [None]
  - FALL [None]
  - FOOT AMPUTATION [None]
  - FOOT FRACTURE [None]
  - GANGRENE [None]
  - HYPERSOMNIA [None]
  - MALAISE [None]
  - MYOCARDIAL INFARCTION [None]
  - PHARMACEUTICAL PRODUCT COMPLAINT [None]
  - THERAPEUTIC RESPONSE UNEXPECTED WITH DRUG SUBSTITUTION [None]
  - ULCER HAEMORRHAGE [None]
  - VOMITING [None]
  - WEIGHT INCREASED [None]
